FAERS Safety Report 13123378 (Version 1)
Quarter: 2017Q1

REPORT INFORMATION
  Report Type: Spontaneous
  Country: US (occurrence: US)
  Receive Date: 20170117
  Receipt Date: 20170117
  Transmission Date: 20170428
  Serious: No
  Sender: FDA-Public Use
  Company Number: US-ALLERGAN-1674651US

PATIENT
  Age: 34 Year
  Sex: Female

DRUGS (2)
  1. TEGRETOL [Concomitant]
     Active Substance: CARBAMAZEPINE
     Indication: SEIZURE
     Dosage: 600 MG, BID
     Route: 048
     Dates: start: 2001
  2. DALVANCE [Suspect]
     Active Substance: DALBAVANCIN
     Indication: WOUND INFECTION
     Dosage: 750 MG, UNK
     Route: 041
     Dates: start: 201610

REACTIONS (2)
  - Pruritus [Unknown]
  - Scratch [Unknown]
